FAERS Safety Report 10040818 (Version 2)
Quarter: 2014Q2

REPORT INFORMATION
  Report Type: Report from Study
  Country: CA (occurrence: CA)
  Receive Date: 20140327
  Receipt Date: 20140408
  Transmission Date: 20141212
  Serious: Yes (Other)
  Sender: FDA-Public Use
  Company Number: CA-JNJFOC-20140110268

PATIENT
  Age: 64 Year
  Sex: Female
  Weight: 91.63 kg

DRUGS (1)
  1. STELARA [Suspect]
     Indication: PSORIASIS
     Route: 058
     Dates: start: 20120507, end: 20121113

REACTIONS (2)
  - Cellulitis [Recovered/Resolved]
  - Staphylococcal infection [Unknown]
